FAERS Safety Report 21397506 (Version 1)
Quarter: 2022Q3

REPORT INFORMATION
  Report Type: Spontaneous
  Country: DE (occurrence: DE)
  Receive Date: 20220930
  Receipt Date: 20220930
  Transmission Date: 20221026
  Serious: Yes (Hospitalization)
  Sender: FDA-Public Use
  Company Number: DE-ADRED-07893-01

PATIENT
  Age: 56 Year
  Sex: Female
  Weight: 42.4 kg

DRUGS (7)
  1. PROGESTERONE [Suspect]
     Active Substance: PROGESTERONE
     Dosage: 200 MG, 0-0-1-0, KAPSELN
     Route: 048
  2. LEVOTHYROXINE SODIUM [Concomitant]
     Active Substance: LEVOTHYROXINE SODIUM
     Dosage: 50 ?G, 1-0-0-0, TABLETTEN
     Route: 048
  3. BISOPROLOL [Concomitant]
     Active Substance: BISOPROLOL
     Dosage: 2.5 MG, 1-0-1-0, TABLETTEN
     Route: 048
  4. DIETARY SUPPLEMENT\HERBALS [Concomitant]
     Active Substance: DIETARY SUPPLEMENT\HERBALS
     Dosage: 36|12|36|36|36 MG, 1-1-1-0, TABLETTEN
     Route: 048
  5. ESTRADIOL [Suspect]
     Active Substance: ESTRADIOL
     Dosage: 1.53 MG, 1-0-0-0, TRANSDERMALES SPRAY
     Route: 061
  6. LORAZEPAM [Concomitant]
     Active Substance: LORAZEPAM
     Dosage: 1 MG, BEDARF, SCHMELZTABLETTEN
     Route: 048
  7. FOLIC ACID [Concomitant]
     Active Substance: FOLIC ACID
     Dosage: 5 MG, NACH SCHEMA, TABLETTEN
     Route: 048

REACTIONS (4)
  - Anxiety [Unknown]
  - General physical health deterioration [Unknown]
  - Fatigue [Unknown]
  - Panic reaction [Unknown]
